FAERS Safety Report 17256830 (Version 1)
Quarter: 2020Q1

REPORT INFORMATION
  Report Type: Spontaneous
  Country: DE (occurrence: DE)
  Receive Date: 20200110
  Receipt Date: 20200110
  Transmission Date: 20200409
  Serious: Yes (Hospitalization)
  Sender: FDA-Public Use
  Company Number: DE-TEVA-2018-DE-902250

PATIENT
  Age: 69 Year
  Sex: Female

DRUGS (13)
  1. DOXEPIN [Suspect]
     Active Substance: DOXEPIN
     Route: 065
  2. COLECALCIFEROL [Concomitant]
     Active Substance: CHOLECALCIFEROL
     Route: 065
  3. OXYCODONE [Suspect]
     Active Substance: OXYCODONE
     Route: 065
  4. LAMOTRIGIN [Suspect]
     Active Substance: LAMOTRIGINE
     Route: 065
  5. METAMIZOL [Concomitant]
     Active Substance: METAMIZOLE SODIUM
     Route: 065
  6. CALCIUM/COLECALCIFEROL [Concomitant]
     Active Substance: CALCIUM\CHOLECALCIFEROL
     Route: 065
  7. FOLSAEURE [Concomitant]
     Active Substance: FOLIC ACID
     Route: 065
  8. SIMVASTATIN. [Concomitant]
     Active Substance: SIMVASTATIN
     Route: 065
  9. TROSPIUM [Concomitant]
     Active Substance: TROSPIUM
     Dosage: 30 MG, 1-0-0-0
     Route: 065
  10. METHOTREXAT [Suspect]
     Active Substance: METHOTREXATE
     Route: 065
  11. PREGABALIN. [Suspect]
     Active Substance: PREGABALIN
     Route: 065
  12. LORAZEPAM. [Suspect]
     Active Substance: LORAZEPAM
     Route: 065
  13. PANTOPRAZOL [Concomitant]
     Active Substance: PANTOPRAZOLE SODIUM
     Route: 065

REACTIONS (4)
  - Fracture [Unknown]
  - Product used for unknown indication [Unknown]
  - Fall [Unknown]
  - Dizziness [Unknown]

NARRATIVE: CASE EVENT DATE: 20151012
